FAERS Safety Report 25033280 (Version 1)
Quarter: 2025Q1

REPORT INFORMATION
  Report Type: Spontaneous
  Country: AU (occurrence: AU)
  Receive Date: 20250303
  Receipt Date: 20250303
  Transmission Date: 20250409
  Serious: Yes (Death, Hospitalization, Other)
  Sender: REGENERON
  Company Number: AU-Medison-001053

PATIENT
  Age: 51 Year
  Sex: Female

DRUGS (8)
  1. LIBTAYO [Suspect]
     Active Substance: CEMIPLIMAB-RWLC
     Indication: Squamous cell carcinoma of skin
     Route: 042
  2. SODIUM CHLORIDE [Concomitant]
     Active Substance: SODIUM CHLORIDE
     Indication: Premedication
  3. HYDROCORTISONE [Concomitant]
     Active Substance: HYDROCORTISONE
     Indication: Premedication
  4. PROMETHAZINE [Concomitant]
     Active Substance: PROMETHAZINE HYDROCHLORIDE
     Indication: Premedication
  5. ACETAMINOPHEN [Concomitant]
     Active Substance: ACETAMINOPHEN
     Indication: Premedication
  6. MORPHINE [Concomitant]
     Active Substance: MORPHINE
     Indication: Product used for unknown indication
     Route: 042
  7. KETAMINE [Concomitant]
     Active Substance: KETAMINE
     Indication: Immune tolerance induction
     Route: 042
  8. KETAMINE [Concomitant]
     Active Substance: KETAMINE
     Route: 042

REACTIONS (6)
  - Death [Fatal]
  - Immune-mediated enterocolitis [Unknown]
  - Adverse event [Unknown]
  - Infusion related reaction [Unknown]
  - Lymphadenopathy [Unknown]
  - Diarrhoea [Unknown]
